FAERS Safety Report 8446385-0 (Version None)
Quarter: 2012Q2

REPORT INFORMATION
  Report Type: 
  Country: None (occurrence: None)
  Receive Date: 20120618
  Receipt Date: 20111129
  Transmission Date: 20120825
  Serious: Yes (Hospitalization, Other)
  Sender: FDA-Public Use
  Company Number: US-TEVA-2011006018

PATIENT
  Age: 17 Month
  Sex: Male

DRUGS (1)
  1. ACTIQ [Suspect]
     Route: 002

REACTIONS (3)
  - ACCIDENTAL DRUG INTAKE BY CHILD [None]
  - DYSPNOEA [None]
  - SOMNOLENCE [None]
